FAERS Safety Report 7760510-6 (Version None)
Quarter: 2011Q3

REPORT INFORMATION
  Report Type: 
  Country: None (occurrence: None)
  Receive Date: 20110919
  Receipt Date: 20110915
  Transmission Date: 20111222
  Serious: Yes (Hospitalization, Other)
  Sender: FDA-Public Use
  Company Number: US-PFIZER INC-2011179289

PATIENT
  Sex: Male
  Weight: 73 kg

DRUGS (4)
  1. LIPITOR [Suspect]
     Indication: BLOOD CHOLESTEROL ABNORMAL
     Dosage: UNK
     Route: 048
     Dates: start: 20110725, end: 20110803
  2. LISINOPRIL [Concomitant]
     Dosage: 20MG, UNK
  3. DILTIAZEM [Concomitant]
     Dosage: 240MG, UNK
  4. ZYRTEC [Concomitant]
     Indication: HYPERSENSITIVITY
     Dosage: 10MG, UNK

REACTIONS (9)
  - PLATELET COUNT INCREASED [None]
  - ASTHENIA [None]
  - PALLOR [None]
  - PNEUMONIA [None]
  - TREMOR [None]
  - CHILLS [None]
  - SKIN DISCOLOURATION [None]
  - ANAEMIA [None]
  - SYNCOPE [None]
